FAERS Safety Report 9894869 (Version 2)
Quarter: 2014Q1

REPORT INFORMATION
  Report Type: Spontaneous
  Country: GB (occurrence: GB)
  Receive Date: 20140213
  Receipt Date: 20140213
  Transmission Date: 20141002
  Serious: Yes (Disabling)
  Sender: FDA-Public Use
  Company Number: GB-PFIZER INC-2014023972

PATIENT
  Age: 34 Year
  Sex: Male
  Weight: 82 kg

DRUGS (1)
  1. CHAMPIX [Suspect]
     Dosage: 1 MG, 2X/DAY
     Route: 048
     Dates: start: 20130207, end: 20130401

REACTIONS (6)
  - Psychotic behaviour [Recovering/Resolving]
  - Anxiety [Recovering/Resolving]
  - Morbid thoughts [Recovering/Resolving]
  - Panic attack [Recovering/Resolving]
  - Delusional perception [Recovering/Resolving]
  - Tobacco user [Unknown]
